FAERS Safety Report 26165761 (Version 1)
Quarter: 2025Q4

REPORT INFORMATION
  Report Type: Spontaneous
  Country: GB (occurrence: GB)
  Receive Date: 20251216
  Receipt Date: 20251216
  Transmission Date: 20260118
  Serious: Yes (Other)
  Sender: MYLAN
  Company Number: None

PATIENT
  Age: 79 Year
  Sex: Male
  Weight: 75 kg

DRUGS (32)
  1. LATANOPROST [Suspect]
     Active Substance: LATANOPROST
     Indication: Glaucoma
     Dosage: 1 GTT DROPS, PM ( (50MICROGRAMS/ML PUT ONE DROP INTO BOTH EYES ONCE DAILY AT NIGHT))
     Dates: start: 20251113, end: 20251202
  2. LATANOPROST [Suspect]
     Active Substance: LATANOPROST
     Dosage: 1 GTT DROPS, PM ( (50MICROGRAMS/ML PUT ONE DROP INTO BOTH EYES ONCE DAILY AT NIGHT))
     Route: 065
     Dates: start: 20251113, end: 20251202
  3. LATANOPROST [Suspect]
     Active Substance: LATANOPROST
     Dosage: 1 GTT DROPS, PM ( (50MICROGRAMS/ML PUT ONE DROP INTO BOTH EYES ONCE DAILY AT NIGHT))
     Route: 065
     Dates: start: 20251113, end: 20251202
  4. LATANOPROST [Suspect]
     Active Substance: LATANOPROST
     Dosage: 1 GTT DROPS, PM ( (50MICROGRAMS/ML PUT ONE DROP INTO BOTH EYES ONCE DAILY AT NIGHT))
     Dates: start: 20251113, end: 20251202
  5. DIAZEPAM [Concomitant]
     Active Substance: DIAZEPAM
     Indication: Ill-defined disorder
     Dosage: 1 DOSAGE FORM, TID (TAKE ONE THREE TIMES DAILY AS DIRECTED)
     Dates: start: 20251125
  6. DIAZEPAM [Concomitant]
     Active Substance: DIAZEPAM
     Dosage: 1 DOSAGE FORM, TID (TAKE ONE THREE TIMES DAILY AS DIRECTED)
     Route: 065
     Dates: start: 20251125
  7. DIAZEPAM [Concomitant]
     Active Substance: DIAZEPAM
     Dosage: 1 DOSAGE FORM, TID (TAKE ONE THREE TIMES DAILY AS DIRECTED)
     Route: 065
     Dates: start: 20251125
  8. DIAZEPAM [Concomitant]
     Active Substance: DIAZEPAM
     Dosage: 1 DOSAGE FORM, TID (TAKE ONE THREE TIMES DAILY AS DIRECTED)
     Dates: start: 20251125
  9. TAMSULOSIN [Concomitant]
     Active Substance: TAMSULOSIN
     Indication: Ill-defined disorder
     Dosage: 1 DOSAGE FORM, QD (ONE TO BE TAKEN EACH DAY AFTER FOOD)
     Dates: start: 20240910
  10. TAMSULOSIN [Concomitant]
     Active Substance: TAMSULOSIN
     Dosage: 1 DOSAGE FORM, QD (ONE TO BE TAKEN EACH DAY AFTER FOOD)
     Route: 065
     Dates: start: 20240910
  11. TAMSULOSIN [Concomitant]
     Active Substance: TAMSULOSIN
     Dosage: 1 DOSAGE FORM, QD (ONE TO BE TAKEN EACH DAY AFTER FOOD)
     Route: 065
     Dates: start: 20240910
  12. TAMSULOSIN [Concomitant]
     Active Substance: TAMSULOSIN
     Dosage: 1 DOSAGE FORM, QD (ONE TO BE TAKEN EACH DAY AFTER FOOD)
     Dates: start: 20240910
  13. LANSOPRAZOLE [Concomitant]
     Active Substance: LANSOPRAZOLE
     Indication: Ill-defined disorder
     Dosage: 1 DOSAGE FORM, QD (TAKE ONE ONCE DAILY)
     Dates: start: 20240910, end: 20251006
  14. LANSOPRAZOLE [Concomitant]
     Active Substance: LANSOPRAZOLE
     Dosage: 1 DOSAGE FORM, QD (TAKE ONE ONCE DAILY)
     Route: 065
     Dates: start: 20240910, end: 20251006
  15. LANSOPRAZOLE [Concomitant]
     Active Substance: LANSOPRAZOLE
     Dosage: 1 DOSAGE FORM, QD (TAKE ONE ONCE DAILY)
     Route: 065
     Dates: start: 20240910, end: 20251006
  16. LANSOPRAZOLE [Concomitant]
     Active Substance: LANSOPRAZOLE
     Dosage: 1 DOSAGE FORM, QD (TAKE ONE ONCE DAILY)
     Dates: start: 20240910, end: 20251006
  17. RANITIDINE HYDROCHLORIDE [Concomitant]
     Active Substance: RANITIDINE HYDROCHLORIDE
     Indication: Ill-defined disorder
     Dosage: UNK (ONE OR TWO 5ML SPOONFULS TO BE TAKEN AFTER MEAL...)
  18. RANITIDINE HYDROCHLORIDE [Concomitant]
     Active Substance: RANITIDINE HYDROCHLORIDE
     Dosage: UNK (ONE OR TWO 5ML SPOONFULS TO BE TAKEN AFTER MEAL...)
     Route: 065
  19. RANITIDINE HYDROCHLORIDE [Concomitant]
     Active Substance: RANITIDINE HYDROCHLORIDE
     Dosage: UNK (ONE OR TWO 5ML SPOONFULS TO BE TAKEN AFTER MEAL...)
     Route: 065
  20. RANITIDINE HYDROCHLORIDE [Concomitant]
     Active Substance: RANITIDINE HYDROCHLORIDE
     Dosage: UNK (ONE OR TWO 5ML SPOONFULS TO BE TAKEN AFTER MEAL...)
  21. LOSARTAN [Concomitant]
     Active Substance: LOSARTAN
     Indication: Ill-defined disorder
     Dosage: 1 DOSAGE FORM, QD (TAKE ONE DAILY)
     Dates: start: 20250304
  22. LOSARTAN [Concomitant]
     Active Substance: LOSARTAN
     Dosage: 1 DOSAGE FORM, QD (TAKE ONE DAILY)
     Route: 065
     Dates: start: 20250304
  23. LOSARTAN [Concomitant]
     Active Substance: LOSARTAN
     Dosage: 1 DOSAGE FORM, QD (TAKE ONE DAILY)
     Route: 065
     Dates: start: 20250304
  24. LOSARTAN [Concomitant]
     Active Substance: LOSARTAN
     Dosage: 1 DOSAGE FORM, QD (TAKE ONE DAILY)
     Dates: start: 20250304
  25. OMEPRAZOLE [Concomitant]
     Active Substance: OMEPRAZOLE
     Indication: Ill-defined disorder
     Dosage: 1 DOSAGE FORM, QD (ONE TO BE TAKEN EACH DAY)
     Dates: start: 20251006
  26. OMEPRAZOLE [Concomitant]
     Active Substance: OMEPRAZOLE
     Dosage: 1 DOSAGE FORM, QD (ONE TO BE TAKEN EACH DAY)
     Route: 065
     Dates: start: 20251006
  27. OMEPRAZOLE [Concomitant]
     Active Substance: OMEPRAZOLE
     Dosage: 1 DOSAGE FORM, QD (ONE TO BE TAKEN EACH DAY)
     Route: 065
     Dates: start: 20251006
  28. OMEPRAZOLE [Concomitant]
     Active Substance: OMEPRAZOLE
     Dosage: 1 DOSAGE FORM, QD (ONE TO BE TAKEN EACH DAY)
     Dates: start: 20251006
  29. BRINZOLAMIDE [Concomitant]
     Active Substance: BRINZOLAMIDE
     Indication: Ill-defined disorder
     Dosage: 1 GTT DROPS, BID (PUT ONE DROP INTO BOTH EYES TWICE A DAY)
     Dates: start: 20251113
  30. BRINZOLAMIDE [Concomitant]
     Active Substance: BRINZOLAMIDE
     Dosage: 1 GTT DROPS, BID (PUT ONE DROP INTO BOTH EYES TWICE A DAY)
     Route: 047
     Dates: start: 20251113
  31. BRINZOLAMIDE [Concomitant]
     Active Substance: BRINZOLAMIDE
     Dosage: 1 GTT DROPS, BID (PUT ONE DROP INTO BOTH EYES TWICE A DAY)
     Route: 047
     Dates: start: 20251113
  32. BRINZOLAMIDE [Concomitant]
     Active Substance: BRINZOLAMIDE
     Dosage: 1 GTT DROPS, BID (PUT ONE DROP INTO BOTH EYES TWICE A DAY)
     Dates: start: 20251113

REACTIONS (1)
  - Hypertension [Recovered/Resolved]

NARRATIVE: CASE EVENT DATE: 20251128
